FAERS Safety Report 5426773-7 (Version None)
Quarter: 2007Q3

REPORT INFORMATION
  Report Type: 
  Country: None (occurrence: None)
  Receive Date: 20070827
  Receipt Date: 20070816
  Transmission Date: 20080115
  Serious: Yes (Death, Other)
  Sender: FDA-Public Use
  Company Number: US-PFIZER INC-2007068300

PATIENT
  Age: 81 Year
  Sex: Male

DRUGS (1)
  1. CELEBREX [Suspect]
     Indication: ARTHRITIS

REACTIONS (14)
  - ASTHENIA [None]
  - CARDIAC DISORDER [None]
  - COLITIS [None]
  - DEATH [None]
  - DYSPHAGIA [None]
  - FAECES DISCOLOURED [None]
  - GASTRIC DISORDER [None]
  - GASTRITIS [None]
  - HAEMATEMESIS [None]
  - OESOPHAGITIS [None]
  - PNEUMONIA [None]
  - STOMACH DISCOMFORT [None]
  - ULCER [None]
  - WEIGHT DECREASED [None]
